FAERS Safety Report 7743197-8 (Version None)
Quarter: 2011Q3

REPORT INFORMATION
  Report Type: 
  Country: None (occurrence: None)
  Receive Date: 20110912
  Receipt Date: 20110906
  Transmission Date: 20111222
  Serious: Yes (Disabling)
  Sender: FDA-Public Use
  Company Number: MX-ROCHE-801568

PATIENT
  Sex: Female
  Weight: 75 kg

DRUGS (3)
  1. LEVOTHYROXINE SODIUM [Concomitant]
     Route: 048
     Dates: start: 20080301
  2. PLAVIX [Concomitant]
     Indication: PROPHYLAXIS
     Route: 048
     Dates: start: 20080301
  3. BONIVA [Suspect]
     Indication: OSTEOPOROSIS
     Route: 048
     Dates: start: 20080301

REACTIONS (1)
  - FOOT FRACTURE [None]
